FAERS Safety Report 19400150 (Version 4)
Quarter: 2021Q3

REPORT INFORMATION
  Report Type: Spontaneous
  Country: CA (occurrence: CA)
  Receive Date: 20210610
  Receipt Date: 20210929
  Transmission Date: 20211014
  Serious: Yes (Other)
  Sender: FDA-Public Use
  Company Number: CA-PFIZER INC-2021641807

PATIENT
  Age: 48 Year
  Sex: Female

DRUGS (9)
  1. PREDNISONE. [Concomitant]
     Active Substance: PREDNISONE
     Dosage: 1 DF
     Dates: start: 202108
  2. LEFLUNOMIDE. [Concomitant]
     Active Substance: LEFLUNOMIDE
     Dosage: 20 MG
     Route: 065
  3. CELEBREX [Concomitant]
     Active Substance: CELECOXIB
     Indication: ARTHRITIS
     Dosage: 200 MG, 2X/DAY
  4. SULFASALAZINE. [Concomitant]
     Active Substance: SULFASALAZINE
     Dosage: 1 DF
  5. LYRICA [Concomitant]
     Active Substance: PREGABALIN
     Dosage: 600 MG
  6. ARAVA [Concomitant]
     Active Substance: LEFLUNOMIDE
     Dosage: 20 MG, 1X/DAY
  7. XELJANZ XR [Suspect]
     Active Substance: TOFACITINIB CITRATE
     Indication: RHEUMATOID ARTHRITIS
     Dosage: 11 MG, 1X/DAY
     Route: 048
     Dates: start: 202002
  8. TECTA [Concomitant]
     Active Substance: PANTOPRAZOLE MAGNESIUM
     Dosage: 40 MG, 1X/DAY
  9. METHOTREXATE. [Concomitant]
     Active Substance: METHOTREXATE
     Dosage: 1 DF

REACTIONS (11)
  - Joint effusion [Unknown]
  - Inflammation [Unknown]
  - Drug ineffective [Not Recovered/Not Resolved]
  - Sciatic nerve neuropathy [Unknown]
  - Joint swelling [Unknown]
  - Swelling [Unknown]
  - Oedema peripheral [Unknown]
  - Nerve compression [Unknown]
  - Rheumatoid arthritis [Not Recovered/Not Resolved]
  - Periarthritis [Unknown]
  - Fibromyalgia [Not Recovered/Not Resolved]
